FAERS Safety Report 20145410 (Version 3)
Quarter: 2022Q1

REPORT INFORMATION
  Report Type: Spontaneous
  Country: JP (occurrence: JP)
  Receive Date: 20211203
  Receipt Date: 20220203
  Transmission Date: 20220423
  Serious: Yes (Other)
  Sender: FDA-Public Use
  Company Number: JP-JNJFOC-20211200008

PATIENT
  Age: 78 Year
  Sex: Female

DRUGS (7)
  1. VELCADE [Suspect]
     Active Substance: BORTEZOMIB
     Indication: Mantle cell lymphoma recurrent
     Dosage: UNK
     Route: 058
     Dates: start: 20211110
  2. IMBRUVICA [Suspect]
     Active Substance: IBRUTINIB
     Indication: Mantle cell lymphoma recurrent
     Dosage: 280 MILLIGRAM, QD
     Route: 048
  3. RITUXIMAB [Concomitant]
     Active Substance: RITUXIMAB
     Indication: Mantle cell lymphoma recurrent
     Dosage: UNK
     Route: 065
  4. RITUXIMAB [Concomitant]
     Active Substance: RITUXIMAB
     Dosage: UNK
     Route: 065
     Dates: start: 20211110
  5. CYCLOPHOSPHAMIDE [Concomitant]
     Active Substance: CYCLOPHOSPHAMIDE
     Indication: Mantle cell lymphoma recurrent
     Dosage: UNK
     Route: 065
     Dates: start: 20211110
  6. DOXORUBICIN HYDROCHLORIDE [Concomitant]
     Active Substance: DOXORUBICIN HYDROCHLORIDE
     Indication: Mantle cell lymphoma recurrent
     Dosage: UNK
     Route: 065
     Dates: start: 20211110
  7. PREDNISOLONE [Concomitant]
     Active Substance: PREDNISOLONE
     Indication: Mantle cell lymphoma recurrent
     Dosage: UNK
     Route: 065
     Dates: start: 20211110

REACTIONS (2)
  - Drug ineffective [Unknown]
  - Mantle cell lymphoma [Unknown]
